FAERS Safety Report 22538116 (Version 1)
Quarter: 2023Q2

REPORT INFORMATION
  Report Type: Spontaneous
  Country: CN (occurrence: CN)
  Receive Date: 20230608
  Receipt Date: 20230608
  Transmission Date: 20230722
  Serious: Yes (Hospitalization, Other)
  Sender: FDA-Public Use
  Company Number: CN-PFIZER INC-2020464351

PATIENT
  Age: 51 Year
  Sex: Male

DRUGS (3)
  1. OXYCODONE HYDROCHLORIDE [Interacting]
     Active Substance: OXYCODONE HYDROCHLORIDE
     Indication: Headache
     Dosage: 1 DOSAGE FORM, DAILY
     Route: 065
     Dates: start: 201906, end: 201906
  2. PREGABALIN [Interacting]
     Active Substance: PREGABALIN
     Indication: Headache
     Dosage: 75 MILLIGRAM, Q12H
     Route: 048
     Dates: start: 20190616, end: 201906
  3. OXYCODONE AND ACETAMINOPHEN [Interacting]
     Active Substance: ACETAMINOPHEN\OXYCODONE HYDROCHLORIDE
     Indication: Headache
     Dosage: 1 DOSAGE FORM
     Route: 048
     Dates: start: 20190530, end: 201906

REACTIONS (7)
  - Cognitive disorder [Recovered/Resolved]
  - Delirium [Recovered/Resolved]
  - Irritability [Recovered/Resolved]
  - Disorientation [Recovered/Resolved]
  - Seizure [Recovered/Resolved]
  - Self-medication [Recovered/Resolved]
  - Drug interaction [Recovered/Resolved]

NARRATIVE: CASE EVENT DATE: 20190601
